FAERS Safety Report 7360588-8 (Version None)
Quarter: 2011Q1

REPORT INFORMATION
  Report Type: 
  Country: None (occurrence: None)
  Receive Date: 20110315
  Receipt Date: 20110315
  Transmission Date: 20110831
  Serious: No
  Sender: FDA-Public Use
  Company Number: None

PATIENT
  Age: 40 Year
  Sex: Female
  Weight: 56.6996 kg

DRUGS (1)
  1. DYSPORT [Suspect]
     Indication: SKIN WRINKLING
     Dates: start: 20110303, end: 20110303

REACTIONS (12)
  - EYE PAIN [None]
  - MUSCLE DISORDER [None]
  - OROPHARYNGEAL PAIN [None]
  - ANXIETY [None]
  - HYPERHIDROSIS [None]
  - MUSCULAR WEAKNESS [None]
  - FEELING ABNORMAL [None]
  - HEADACHE [None]
  - INJECTION SITE PAIN [None]
  - ASTHENIA [None]
  - URINARY TRACT INFECTION [None]
  - VISION BLURRED [None]
